FAERS Safety Report 8153849 (Version 5)
Quarter: 2013Q3

REPORT INFORMATION
  Report Type: Report from Study
  Country: JP (occurrence: JP)
  Receive Date: 20110923
  Receipt Date: 20130817
  Transmission Date: 20140515
  Serious: Yes (Hospitalization, Other)
  Sender: FDA-Public Use
  Company Number: JP-ROCHE-802413

PATIENT
  Age: 49 Year
  Sex: Female
  Weight: 44 kg

DRUGS (10)
  1. TRASTUZUMAB [Suspect]
     Indication: BREAST CANCER METASTATIC
     Route: 041
     Dates: start: 20100630, end: 20100630
  2. TRASTUZUMAB [Suspect]
     Route: 041
     Dates: end: 20110420
  3. TRASTUZUMAB [Suspect]
     Route: 041
     Dates: start: 20110524, end: 20110524
  4. TRASTUZUMAB [Suspect]
     Route: 041
     Dates: start: 20110601, end: 20110623
  5. TRASTUZUMAB [Suspect]
     Route: 041
     Dates: start: 20110706
  6. DOCETAXEL [Suspect]
     Indication: BREAST CANCER METASTATIC
     Route: 041
     Dates: start: 20100630, end: 20110420
  7. VINORELBINE [Suspect]
     Indication: BREAST CANCER METASTATIC
     Route: 041
     Dates: start: 20110524, end: 20110721
  8. LENDORMIN [Concomitant]
     Indication: INSOMNIA
     Dosage: UNCERTAIN DOSAGE AND SINGLE USE
     Route: 048
  9. PLACEBO [Suspect]
     Indication: BREAST CANCER METASTATIC
     Route: 042
     Dates: start: 20100629, end: 20100629
  10. PLACEBO [Suspect]
     Route: 042

REACTIONS (2)
  - Prinzmetal angina [Recovered/Resolved]
  - Malaise [Unknown]
